FAERS Safety Report 5496310-X (Version None)
Quarter: 2007Q4

REPORT INFORMATION
  Report Type: 
  Country: None (occurrence: None)
  Receive Date: 20071025
  Receipt Date: 20070323
  Transmission Date: 20080405
  Serious: No
  Sender: FDA-Public Use
  Company Number: A0644381A

PATIENT
  Sex: Male

DRUGS (7)
  1. ADVAIR DISKUS 100/50 [Suspect]
     Dosage: 1PUFF TWICE PER DAY
     Route: 055
     Dates: start: 20070309
  2. AMARYL [Concomitant]
  3. LISINOPRIL [Concomitant]
  4. GLUCOPHAGE [Concomitant]
  5. PLETAL [Concomitant]
  6. PROSCAR [Concomitant]
  7. AVANDIA [Concomitant]

REACTIONS (4)
  - DYSPHONIA [None]
  - PHARYNGOLARYNGEAL DISCOMFORT [None]
  - PHARYNGOLARYNGEAL PAIN [None]
  - SPEECH DISORDER [None]
